FAERS Safety Report 20624492 (Version 20)
Quarter: 2024Q4

REPORT INFORMATION
  Report Type: Report from Study
  Country: CA (occurrence: CA)
  Receive Date: 20220322
  Receipt Date: 20241026
  Transmission Date: 20250115
  Serious: No
  Sender: ROCHE
  Company Number: CA-ROCHE-3054464

PATIENT
  Age: 47 Year
  Sex: Female

DRUGS (2)
  1. OCREVUS [Suspect]
     Active Substance: OCRELIZUMAB
     Indication: Multiple sclerosis relapse
     Dosage: 300 MG AT DAY 0 AND 14, THEN 600 MG EVERY 6 MONTHS
     Route: 042
     Dates: start: 20210810
  2. BOTOX [Concomitant]
     Active Substance: ONABOTULINUMTOXINA

REACTIONS (11)
  - Bacterial test positive [Unknown]
  - Cystitis [Recovering/Resolving]
  - Urinary tract infection [Not Recovered/Not Resolved]
  - Depression [Not Recovered/Not Resolved]
  - Urinary tract infection [Not Recovered/Not Resolved]
  - Otitis media [Recovering/Resolving]
  - Sinusitis [Recovering/Resolving]
  - Multiple sclerosis [Recovering/Resolving]
  - Pneumonia [Unknown]
  - White blood cells urine positive [Not Recovered/Not Resolved]
  - White blood cell disorder [Not Recovered/Not Resolved]

NARRATIVE: CASE EVENT DATE: 20210824
